FAERS Safety Report 6379725-7 (Version None)
Quarter: 2009Q3

REPORT INFORMATION
  Report Type: 
  Country: None (occurrence: None)
  Receive Date: 20090928
  Receipt Date: 20090914
  Transmission Date: 20100115
  Serious: Yes (Other)
  Sender: FDA-Public Use
  Company Number: JP-AVENTIS-200912633JP

PATIENT
  Age: 68 Year
  Sex: Male

DRUGS (5)
  1. TAXOTERE [Suspect]
     Route: 042
     Dates: start: 20090722, end: 20090812
  2. ASA404 [Suspect]
     Route: 042
     Dates: start: 20090722, end: 20090812
  3. LAXOBERON [Concomitant]
  4. LECICARBON                         /00739901/ [Concomitant]
  5. PURSENNID                          /00571901/ [Concomitant]

REACTIONS (4)
  - ABDOMINAL DISTENSION [None]
  - BLADDER CATHETERISATION [None]
  - PAIN [None]
  - URINARY RETENTION [None]
